FAERS Safety Report 10221655 (Version 2)
Quarter: 2014Q2

REPORT INFORMATION
  Report Type: Spontaneous
  Country: NL (occurrence: NL)
  Receive Date: 20140606
  Receipt Date: 20140620
  Transmission Date: 20141212
  Serious: Yes (Hospitalization)
  Sender: FDA-Public Use
  Company Number: NL-TEVA-485259ISR

PATIENT
  Age: 57 Year
  Sex: Female
  Weight: 70 kg

DRUGS (7)
  1. QUETIAPINE TEVA TABLET FILMOMHULD  25MG [Suspect]
     Indication: DEPRESSION
     Route: 048
     Dates: start: 201402, end: 20140502
  2. OMEPRAZOL CAPSULE MGA 40MG [Concomitant]
     Dosage: PROLONGED-RELEASE CAPSULE
     Route: 048
  3. IRBESARTAN/HYDROCHLOORTHIAZIDE TABLET 150/12,5MG [Concomitant]
     Route: 048
  4. ROSUVASTATINE TABLET FO 20MG [Concomitant]
     Dosage: 20 MILLIGRAM DAILY;
     Route: 048
  5. ACETYLSALICYLZUUR DISPERTABLET 80MG [Concomitant]
     Route: 048
  6. ALPRAZOLAM TABLET 0,25MG [Concomitant]
     Route: 048
  7. LEXAPRO TABLET FILMOMHULD 20MG [Concomitant]
     Route: 048

REACTIONS (1)
  - Renal failure [Recovered/Resolved with Sequelae]
